FAERS Safety Report 21981165 (Version 1)
Quarter: 2023Q1

REPORT INFORMATION
  Report Type: Spontaneous
  Country: CN (occurrence: CN)
  Receive Date: 20230211
  Receipt Date: 20230211
  Transmission Date: 20230417
  Serious: Yes (Hospitalization, Other)
  Sender: FDA-Public Use
  Company Number: CN-002147023-NVSC2023CN025888

PATIENT
  Age: 85 Year
  Sex: Male
  Weight: 60 kg

DRUGS (2)
  1. VORICONAZOLE [Suspect]
     Active Substance: VORICONAZOLE
     Indication: Pneumonia
     Dosage: 200 MG, BID
     Route: 048
     Dates: start: 20230109, end: 20230116
  2. CILASTATIN SODIUM\IMIPENEM [Concomitant]
     Active Substance: CILASTATIN SODIUM\IMIPENEM
     Indication: Infection
     Dosage: UNK
     Route: 065

REACTIONS (9)
  - Myelosuppression [Recovering/Resolving]
  - Type 2 diabetes mellitus [Unknown]
  - Diabetic hyperosmolar coma [Unknown]
  - Infection [Unknown]
  - Neutrophil count increased [Not Recovered/Not Resolved]
  - White blood cell count increased [Recovered/Resolved]
  - Platelet count decreased [Recovered/Resolved]
  - Haemoglobin decreased [Not Recovered/Not Resolved]
  - Petechiae [Unknown]

NARRATIVE: CASE EVENT DATE: 20230109
